FAERS Safety Report 20341756 (Version 1)
Quarter: 2022Q1

REPORT INFORMATION
  Report Type: Report from Study
  Country: US (occurrence: US)
  Receive Date: 20220117
  Receipt Date: 20220117
  Transmission Date: 20220423
  Serious: Yes (Other)
  Sender: FDA-Public Use
  Company Number: US-JNJFOC-20220118309

PATIENT
  Sex: Female

DRUGS (6)
  1. SPRAVATO [Suspect]
     Active Substance: ESKETAMINE
     Indication: Depression
     Dosage: 56 MG. TOTAL 1 DOSE
     Dates: start: 20210527, end: 20210527
  2. SPRAVATO [Suspect]
     Active Substance: ESKETAMINE
     Dosage: 84 MG, TOTAL 8 DOSES
     Dates: start: 20210603, end: 20210706
  3. SPRAVATO [Suspect]
     Active Substance: ESKETAMINE
     Dosage: 56 MG. TOTAL 1 DOSE
     Dates: start: 20210708, end: 20210708
  4. SPRAVATO [Suspect]
     Active Substance: ESKETAMINE
     Dosage: 84 MG, TOTAL 15 DOSES
     Dates: start: 20210712, end: 20211013
  5. SPRAVATO [Suspect]
     Active Substance: ESKETAMINE
     Dosage: 56 MG, TOTAL 2 DOSE
     Dates: start: 20211020, end: 20211027
  6. SPRAVATO [Suspect]
     Active Substance: ESKETAMINE
     Dates: start: 20220107, end: 20220107

REACTIONS (1)
  - Hip surgery [Unknown]
